FAERS Safety Report 16197322 (Version 3)
Quarter: 2019Q2

REPORT INFORMATION
  Report Type: Report from Study
  Country: DE (occurrence: DE)
  Receive Date: 20190415
  Receipt Date: 20190528
  Transmission Date: 20190711
  Serious: Yes (Hospitalization)
  Sender: FDA-Public Use
  Company Number: DE-ROCHE-2301855

PATIENT
  Age: 53 Year
  Sex: Female
  Weight: 95 kg

DRUGS (13)
  1. EMEND [Concomitant]
     Active Substance: APREPITANT
     Indication: CHEMOTHERAPY
     Route: 065
     Dates: start: 20180530
  2. ONDANSETRON [Concomitant]
     Active Substance: ONDANSETRON
     Indication: NAUSEA
  3. OLANZAPIN [Concomitant]
     Active Substance: OLANZAPINE
     Indication: CHEMOTHERAPY
     Route: 065
     Dates: start: 20180530
  4. DESOXIMETASONE. [Concomitant]
     Active Substance: DESOXIMETASONE
     Indication: ECZEMA
     Dosage: DOSE 1, UNIT OTHER
     Route: 061
     Dates: start: 20180810
  5. PREDNISOLONE. [Concomitant]
     Active Substance: PREDNISOLONE
     Indication: COLITIS
     Route: 048
  6. CISPLATIN. [Suspect]
     Active Substance: CISPLATIN
     Indication: NON-SMALL CELL LUNG CANCER
     Dosage: MOST RECENT DOSE PRIOR TO EVENT ONSET: 11/JUL/2018, 152 MG
     Route: 042
     Dates: start: 20180530
  7. VINORELBINE [Suspect]
     Active Substance: VINORELBINE\VINORELBINE TARTRATE
     Indication: NON-SMALL CELL LUNG CANCER
     Dosage: MOST RECENT DOSE PRIOR TO EVENT ONSET: 18/JUL/2018, 61 MG
     Route: 042
     Dates: start: 20180530
  8. ONDANSETRON [Concomitant]
     Active Substance: ONDANSETRON
     Indication: CHEMOTHERAPY
     Route: 065
     Dates: start: 20180530
  9. ATEZOLIZUMAB. [Suspect]
     Active Substance: ATEZOLIZUMAB
     Indication: NON-SMALL CELL LUNG CANCER
     Dosage: MOST RECENT DOSE PRIOR TO EVENT ONSET: 18/MAR/2019
     Route: 042
     Dates: start: 20180809
  10. BISOPROLOL [Concomitant]
     Active Substance: BISOPROLOL
     Indication: HYPERTENSION
     Route: 065
     Dates: start: 20180711
  11. NOVAMINSULFON [Concomitant]
     Active Substance: METAMIZOLE
     Indication: COLITIS
     Route: 065
  12. ENTOCORT [Concomitant]
     Active Substance: BUDESONIDE
     Indication: COLITIS
     Route: 048
  13. ARCOXIA [Concomitant]
     Active Substance: ETORICOXIB
     Indication: TENDON PAIN
     Route: 065
     Dates: start: 20181008

REACTIONS (1)
  - Sarcoidosis [Not Recovered/Not Resolved]

NARRATIVE: CASE EVENT DATE: 20190408
